FAERS Safety Report 21469315 (Version 1)
Quarter: 2022Q4

REPORT INFORMATION
  Report Type: Report from Study
  Country: US (occurrence: US)
  Receive Date: 20221018
  Receipt Date: 20221018
  Transmission Date: 20230113
  Serious: Yes (Hospitalization, Other)
  Sender: FDA-Public Use
  Company Number: US-BRISTOL-MYERS SQUIBB COMPANY-2022-121871

PATIENT
  Age: 16 Year
  Sex: Male
  Weight: 59.5 kg

DRUGS (4)
  1. NIVOLUMAB [Suspect]
     Active Substance: NIVOLUMAB
     Indication: Hodgkin^s disease
     Dosage: 240MG ON DAYS 1 AND 15 (OF 28DAY CYCLE).
     Route: 042
     Dates: start: 20220803, end: 20220928
  2. DACARBAZINE [Suspect]
     Active Substance: DACARBAZINE
     Indication: Hodgkin^s disease
     Dosage: 375MG/M2 INTRAVENOUSLY ON DAY 1 AND 15 (OF 28DAY CYCLE)
     Route: 042
     Dates: start: 20220803, end: 20220928
  3. DOXORUBICIN HYDROCHLORIDE [Suspect]
     Active Substance: DOXORUBICIN HYDROCHLORIDE
     Indication: Hodgkin^s disease
     Dosage: 25MG/M2 INTRAVENOUSLY ON DAY 1 AND 15 (OF 28DAY CYCLE)
     Route: 042
     Dates: start: 20220803, end: 20220928
  4. VINBLASTINE SULFATE [Suspect]
     Active Substance: VINBLASTINE SULFATE
     Indication: Hodgkin^s disease
     Dosage: 6MG/M2 INTRAVENOUSLY ON DAY 1 AND 15 (OF 28DAY CYCLE),
     Route: 042
     Dates: start: 20220803, end: 20220928

REACTIONS (1)
  - Cerebrovascular accident [Recovering/Resolving]

NARRATIVE: CASE EVENT DATE: 20221007
